FAERS Safety Report 21970931 (Version 1)
Quarter: 2023Q1

REPORT INFORMATION
  Report Type: Other
  Country: DE (occurrence: DE)
  Receive Date: 20230209
  Receipt Date: 20230209
  Transmission Date: 20230418
  Serious: Yes (Other)
  Sender: FDA-Public Use
  Company Number: DE-MACLEODS PHARMACEUTICALS US LTD-MAC2023039557

PATIENT

DRUGS (3)
  1. LEVOFLOXACIN [Suspect]
     Active Substance: LEVOFLOXACIN
     Indication: Cystitis noninfective
     Dosage: UNK
     Route: 048
     Dates: start: 20220312, end: 20220320
  2. CIPROFLOXACIN [Suspect]
     Active Substance: CIPROFLOXACIN
     Indication: Bacterial vulvovaginitis
     Dosage: 500 MILLIGRAM, BID  (2X1 (500 MG))
     Route: 048
     Dates: start: 20221023, end: 20221024
  3. CIPROFLOXACIN [Suspect]
     Active Substance: CIPROFLOXACIN
     Indication: Klebsiella infection

REACTIONS (19)
  - Precancerous skin lesion [Recovering/Resolving]
  - Neuralgia [Recovering/Resolving]
  - Ill-defined disorder [Recovering/Resolving]
  - Irritable bowel syndrome [Recovering/Resolving]
  - Tendon pain [Recovering/Resolving]
  - Heart rate increased [Recovering/Resolving]
  - Small fibre neuropathy [Recovering/Resolving]
  - Body temperature fluctuation [Recovering/Resolving]
  - Migraine with aura [Recovering/Resolving]
  - Muscular weakness [Recovering/Resolving]
  - Hypoaesthesia [Recovering/Resolving]
  - Dizziness [Recovering/Resolving]
  - Arthralgia [Recovering/Resolving]
  - Palpitations [Recovering/Resolving]
  - Fatigue [Recovering/Resolving]
  - Tinnitus [Recovering/Resolving]
  - Myalgia [Recovering/Resolving]
  - Abdominal pain upper [Recovering/Resolving]
  - Headache [Recovering/Resolving]

NARRATIVE: CASE EVENT DATE: 20220501
